FAERS Safety Report 9079705 (Version 1)
Quarter: 2013Q1

REPORT INFORMATION
  Report Type: Spontaneous
  Country: US (occurrence: US)
  Receive Date: 20130130
  Receipt Date: 20130130
  Transmission Date: 20140127
  Serious: Yes (Other)
  Sender: FDA-Public Use
  Company Number: US-ELI_LILLY_AND_COMPANY-US201301007057

PATIENT
  Sex: Male

DRUGS (1)
  1. ZYPREXA RELPREVV [Suspect]
     Dosage: 300 MG, UNKNOWN
     Route: 065
     Dates: start: 20120921

REACTIONS (3)
  - Gallbladder disorder [Unknown]
  - Abdominal pain [Unknown]
  - Hepatic enzyme increased [Unknown]
